FAERS Safety Report 6085181-9 (Version None)
Quarter: 2009Q1

REPORT INFORMATION
  Report Type: 
  Country: None (occurrence: None)
  Receive Date: 20090220
  Receipt Date: 20090209
  Transmission Date: 20090719
  Serious: No
  Sender: FDA-Public Use
  Company Number: BR-ROCHE-614027

PATIENT
  Sex: Female
  Weight: 54 kg

DRUGS (3)
  1. ROACUTAN [Suspect]
     Indication: ACNE
     Dosage: TAKEN 2 DOSE FORM.
     Route: 048
     Dates: start: 20080601, end: 20080101
  2. ROACUTAN [Suspect]
     Dosage: TAKEN 1 DOSE FORM.
     Route: 048
     Dates: start: 20080101, end: 20081101
  3. DROSPIRENONE AND ETHINYL ESTRADIOL [Suspect]
     Indication: CONTRACEPTION
     Dosage: DRUG REPORTED AS: ELANI, OTHER INDICATION: HORMONE CONTROL.
     Route: 048
     Dates: start: 20080601, end: 20081001

REACTIONS (2)
  - NO ADVERSE EVENT [None]
  - PREGNANCY [None]
